FAERS Safety Report 6373134-2 (Version None)
Quarter: 2009Q3

REPORT INFORMATION
  Report Type: 
  Country: None (occurrence: None)
  Receive Date: 20090924
  Receipt Date: 20090129
  Transmission Date: 20100115
  Serious: No
  Sender: FDA-Public Use
  Company Number: US-ASTRAZENECA-2009UW02908

PATIENT
  Age: 41 Year
  Sex: Female

DRUGS (1)
  1. SEROQUEL [Suspect]
     Dosage: 25 OR 50MG
     Route: 048

REACTIONS (4)
  - ANXIETY [None]
  - DYSPNOEA [None]
  - PALPITATIONS [None]
  - PANIC ATTACK [None]
